FAERS Safety Report 6745568-5 (Version None)
Quarter: 2010Q2

REPORT INFORMATION
  Report Type: 
  Country: None (occurrence: None)
  Receive Date: 20100528
  Receipt Date: 20100524
  Transmission Date: 20101027
  Serious: No
  Sender: FDA-Public Use
  Company Number: US-CEPHALON-2010002380

PATIENT
  Sex: Female

DRUGS (3)
  1. FENTORA [Suspect]
     Indication: MIGRAINE
     Route: 002
     Dates: start: 20100101
  2. FENTORA [Suspect]
  3. OPANA [Suspect]

REACTIONS (1)
  - DRUG PRESCRIBING ERROR [None]
